FAERS Safety Report 6724517-X (Version None)
Quarter: 2010Q2

REPORT INFORMATION
  Report Type: 
  Country: None (occurrence: None)
  Receive Date: 20100513
  Receipt Date: 20100430
  Transmission Date: 20101027
  Serious: Yes (Other)
  Sender: FDA-Public Use
  Company Number: BR-PFIZER INC-2010054893

PATIENT
  Age: 30 Year
  Sex: Male
  Weight: 70 kg

DRUGS (2)
  1. ZYVOX [Suspect]
     Indication: NOSOCOMIAL INFECTION
     Dosage: UNK
     Route: 042
     Dates: start: 20091112, end: 20091201
  2. VANCOMYCIN [Concomitant]
     Indication: NOSOCOMIAL INFECTION
     Dosage: UNK
     Dates: start: 20091112, end: 20091128

REACTIONS (2)
  - DRUG INEFFECTIVE [None]
  - WOUND SECRETION [None]
